FAERS Safety Report 8326431-5 (Version None)
Quarter: 2012Q2

REPORT INFORMATION
  Report Type: 
  Country: None (occurrence: None)
  Receive Date: 20120501
  Receipt Date: 20120425
  Transmission Date: 20120825
  Serious: No
  Sender: FDA-Public Use
  Company Number: US-B.I. PHARMACEUTICALS,INC./RIDGEFIELD-2012-BP-05913BP

PATIENT
  Sex: Female
  Weight: 93.44 kg

DRUGS (4)
  1. TRADJENTA [Suspect]
     Indication: TYPE 2 DIABETES MELLITUS
     Dates: start: 20111130, end: 20120321
  2. LODINE [Suspect]
     Dates: start: 20110501
  3. BLOOD PRESSURE MEDS [Concomitant]
  4. SULFONYLUREA [Concomitant]

REACTIONS (1)
  - RENAL IMPAIRMENT [None]
